FAERS Safety Report 14302133 (Version 10)
Quarter: 2019Q1

REPORT INFORMATION
  Report Type: Spontaneous
  Country: FR (occurrence: FR)
  Receive Date: 20171219
  Receipt Date: 20190207
  Transmission Date: 20190417
  Serious: Yes (Hospitalization, Other)
  Sender: FDA-Public Use
  Company Number: FR-AUROBINDO-AUR-APL-2017-45878

PATIENT

DRUGS (21)
  1. DIFFU K [Suspect]
     Active Substance: POTASSIUM CHLORIDE
     Indication: HYPOKALAEMIA
     Dosage: 6 DF, QD, 6 DF, QD (3 DF DAILY (2-1-0) 2X/DAY (BID) )
     Route: 048
     Dates: start: 20170824, end: 20171003
  2. FUROSEMIDE. [Suspect]
     Active Substance: FUROSEMIDE
     Indication: HYPERTENSION
     Dosage: 30 MG DAILY (2-1-0), 2X/DAY (BID)
     Route: 048
     Dates: start: 20170825, end: 20171003
  3. FUROSEMIDE. [Suspect]
     Active Substance: FUROSEMIDE
     Dosage: UNK UNK, ONCE A DAY
     Route: 048
  4. IRBESARTAN. [Suspect]
     Active Substance: IRBESARTAN
     Indication: HYPERTENSION
     Dosage: 300 MILLIGRAM, ONCE A DAY, 300 MG, QD
     Route: 048
     Dates: start: 20150101, end: 20171006
  5. TERBUTALINE [Suspect]
     Active Substance: TERBUTALINE
     Indication: LUNG DISORDER
     Dosage: 1 DOSAGE FORM, DAILY, 1 DF, QD
     Dates: start: 20170914, end: 20170921
  6. XARELTO [Suspect]
     Active Substance: RIVAROXABAN
     Indication: ATRIAL FIBRILLATION
     Dosage: 20 MG, ONCE DAILY (QD)
     Route: 048
     Dates: start: 20170824, end: 20171025
  7. FUROSEMIDE. [Suspect]
     Active Substance: FUROSEMIDE
     Dosage: BID
     Route: 048
  8. DAFALGAN [Suspect]
     Active Substance: ACETAMINOPHEN
     Indication: PAIN
     Dosage: 1000 MG, 3X/DAY (TID)
     Route: 048
     Dates: start: 20171009
  9. TAVANIC [Suspect]
     Active Substance: LEVOFLOXACIN
     Indication: LUNG DISORDER
     Dosage: 250 MG, 2X/DAY (BID)
     Route: 048
     Dates: start: 20170905, end: 20170919
  10. MIRTAZAPINE. [Suspect]
     Active Substance: MIRTAZAPINE
     Indication: DEPRESSIVE SYMPTOM
     Dosage: 15 MG, ONCE DAILY (QD)
     Route: 048
     Dates: start: 20170910
  11. PANTOPRAZOLE [Suspect]
     Active Substance: PANTOPRAZOLE
     Indication: GASTROOESOPHAGEAL REFLUX DISEASE
     Dosage: 20 MG, QD
     Route: 048
     Dates: start: 20150101, end: 20171025
  12. SEROPLEX [Suspect]
     Active Substance: ESCITALOPRAM OXALATE
     Indication: DEPRESSIVE SYMPTOM
     Dosage: 1 DF, ONCE DAILY (QD)
     Route: 048
     Dates: start: 20170101, end: 20170910
  13. ALPRAZOLAM. [Suspect]
     Active Substance: ALPRAZOLAM
     Indication: DEPRESSIVE SYMPTOM
     Dosage: 0.75 MILLIGRAM, DAILY, 0.25 MG, 3X/DAY (TID)
     Route: 048
     Dates: start: 20170928
  14. COLCHICINE OPOCALIUM [Suspect]
     Active Substance: COLCHICINE
     Indication: GOUT
     Dosage: 1 MG, ONCE DAILY (QD)
     Route: 048
     Dates: start: 20170914, end: 20170921
  15. AMLODIPINE CAPSULE, HARD [Suspect]
     Active Substance: AMLODIPINE BESYLATE
     Indication: PRODUCT USED FOR UNKNOWN INDICATION
     Dosage: 10 MG, ONCE DAILY (QD)
     Route: 048
     Dates: start: 20170825, end: 20170927
  16. NEFOPAM HYDROCHLORIDE [Suspect]
     Active Substance: NEFOPAM HYDROCHLORIDE
     Indication: PAIN
     Dosage: 3 DF, UNK
     Route: 048
  17. TAVANIC [Suspect]
     Active Substance: LEVOFLOXACIN
     Dosage: 500 MILLIGRAM, ONCE A DAY,250 MG, BID
     Route: 048
     Dates: start: 20170905, end: 20170919
  18. VALIUM [Suspect]
     Active Substance: DIAZEPAM
     Indication: DEPRESSIVE SYMPTOM
     Dosage: 3 DOSAGE FORM, DAILY, 10 MG, TID
     Route: 048
     Dates: start: 20170101, end: 20170927
  19. BISOPROLOL [Suspect]
     Active Substance: BISOPROLOL
     Indication: HYPERTENSION
     Dosage: 1.25 MILLIGRAM, ONCE A DAY, 1.25 MG, QD
     Route: 048
     Dates: start: 20171006
  20. METFORMIN FILM-COATED TABLET [Suspect]
     Active Substance: METFORMIN HYDROCHLORIDE
     Indication: DIABETES MELLITUS
     Dosage: 1000 MILLIGRAM, ONCE A DAY, 500 MG, 2X/DAY (BID)
     Route: 048
     Dates: start: 20170824, end: 20171025
  21. NEFOPAM HYDROCHLORIDE [Suspect]
     Active Substance: NEFOPAM HYDROCHLORIDE
     Dosage: 3 ?G, QD
     Route: 048

REACTIONS (1)
  - Agranulocytosis [Recovered/Resolved]

NARRATIVE: CASE EVENT DATE: 20171024
